FAERS Safety Report 13673791 (Version 2)
Quarter: 2017Q3

REPORT INFORMATION
  Report Type: Report from Study
  Country: None (occurrence: PR)
  Receive Date: 20170621
  Receipt Date: 20170717
  Transmission Date: 20171127
  Serious: Yes (Other)
  Sender: FDA-Public Use
  Company Number: PR-ABBVIE-17P-131-1970550-00

PATIENT
  Age: 50 Year
  Sex: Female

DRUGS (3)
  1. HUMIRA [Suspect]
     Active Substance: ADALIMUMAB
     Indication: COLITIS ULCERATIVE
     Route: 058
     Dates: start: 20170130, end: 20170422
  2. PREDNISONE. [Concomitant]
     Active Substance: PREDNISONE
     Indication: SKIN DISORDER
     Dates: start: 201701
  3. PREDNISONE. [Concomitant]
     Active Substance: PREDNISONE
     Indication: COLITIS ULCERATIVE
     Dosage: DAILY
     Route: 048

REACTIONS (5)
  - Gastrointestinal inflammation [Unknown]
  - Injection site cellulitis [Recovered/Resolved]
  - Pyoderma gangrenosum [Not Recovered/Not Resolved]
  - Drug ineffective [Unknown]
  - Malabsorption [Unknown]

NARRATIVE: CASE EVENT DATE: 2017
